FAERS Safety Report 14832904 (Version 2)
Quarter: 2019Q1

REPORT INFORMATION
  Report Type: Report from Study
  Country: DE (occurrence: DE)
  Receive Date: 20180501
  Receipt Date: 20190122
  Transmission Date: 20190417
  Serious: Yes (Hospitalization)
  Sender: FDA-Public Use
  Company Number: PHHY2017DE046760

PATIENT
  Age: 77 Year
  Sex: Male
  Weight: 75 kg

DRUGS (13)
  1. PANTOZOL [Concomitant]
     Active Substance: PANTOPRAZOLE SODIUM
     Indication: PROPHYLAXIS
     Dosage: 40 MG, QD
     Route: 048
     Dates: start: 20170726
  2. NOVALGIN (METAMIZOLE SODIUM) [Concomitant]
     Active Substance: METAMIZOLE SODIUM
     Indication: PROPHYLAXIS
     Dosage: 500 MG, QID
     Route: 048
     Dates: start: 20170314
  3. VOTRIENT [Suspect]
     Active Substance: PAZOPANIB HYDROCHLORIDE
     Indication: RENAL CELL CARCINOMA
     Dosage: 800 MG, QD
     Route: 048
     Dates: start: 20170314, end: 20170324
  4. DEXAMETHASONE. [Concomitant]
     Active Substance: DEXAMETHASONE
     Indication: PROPHYLAXIS
     Dosage: 2 MG, QD
     Route: 042
     Dates: start: 20170324, end: 20170816
  5. L-THYROXINE [Concomitant]
     Active Substance: LEVOTHYROXINE
     Dosage: 75 MG, QD
     Route: 048
     Dates: start: 20170719
  6. ENOXAPARIN [Concomitant]
     Active Substance: ENOXAPARIN
     Indication: THROMBOSIS PROPHYLAXIS
     Dosage: UNK
     Route: 058
     Dates: start: 20170324
  7. L-THYROXINE [Concomitant]
     Active Substance: LEVOTHYROXINE
     Indication: HYPOTHYROIDISM
     Dosage: 25 MG, QD
     Route: 048
     Dates: end: 20170612
  8. VOTRIENT [Suspect]
     Active Substance: PAZOPANIB HYDROCHLORIDE
     Dosage: 800 MG, QD
     Route: 048
     Dates: start: 20170324, end: 20170528
  9. L-THYROXINE [Concomitant]
     Active Substance: LEVOTHYROXINE
     Dosage: 50 MG, QD
     Route: 048
     Dates: start: 20170613, end: 20170718
  10. VOTRIENT [Suspect]
     Active Substance: PAZOPANIB HYDROCHLORIDE
     Dosage: 800 MG, QD
     Route: 048
     Dates: start: 20170613, end: 20170806
  11. DEXAMETHASONE. [Concomitant]
     Active Substance: DEXAMETHASONE
     Dosage: 0.5 MG, QD
     Route: 042
     Dates: start: 20170820, end: 20170822
  12. DEXAMETHASONE. [Concomitant]
     Active Substance: DEXAMETHASONE
     Dosage: 1 MG, QD
     Route: 042
     Dates: start: 20170817, end: 20170819
  13. ONDANSETRON [Concomitant]
     Active Substance: ONDANSETRON
     Indication: PROPHYLAXIS
     Dosage: 4 MG, PRN
     Route: 048
     Dates: start: 20170613

REACTIONS (3)
  - C-reactive protein increased [Not Recovered/Not Resolved]
  - Infection [Not Recovered/Not Resolved]
  - Pain [Unknown]

NARRATIVE: CASE EVENT DATE: 20170324
